FAERS Safety Report 9482085 (Version 3)
Quarter: 2013Q4

REPORT INFORMATION
  Report Type: Report from Study
  Country: JP (occurrence: JP)
  Receive Date: 20130828
  Receipt Date: 20131024
  Transmission Date: 20140711
  Serious: Yes (Other)
  Sender: FDA-Public Use
  Company Number: PHHY2013JP061495

PATIENT
  Age: 48 Year
  Sex: Male

DRUGS (23)
  1. LEPONEX / CLOZARIL [Suspect]
     Indication: SCHIZOPHRENIA, PARANOID TYPE
     Dosage: 12.5 MG, QD
     Route: 048
     Dates: start: 20121221, end: 20121221
  2. LEPONEX / CLOZARIL [Suspect]
     Dosage: 25 MG, QD
     Route: 048
     Dates: start: 20121222, end: 20121224
  3. LEPONEX / CLOZARIL [Suspect]
     Dosage: 50 MG, QD
     Route: 048
     Dates: start: 20121225, end: 20121227
  4. LEPONEX / CLOZARIL [Suspect]
     Dosage: 75 MG, QD
     Route: 048
     Dates: start: 20121228, end: 20130104
  5. LEPONEX / CLOZARIL [Suspect]
     Dosage: 100 MG, QD
     Route: 048
     Dates: start: 20130105, end: 20130507
  6. LEPONEX / CLOZARIL [Suspect]
     Dosage: 125 MG, QD
     Route: 048
     Dates: start: 20130108, end: 20130110
  7. LEPONEX / CLOZARIL [Suspect]
     Dosage: 150 MG, QD
     Route: 048
     Dates: start: 20130111, end: 20130114
  8. LEPONEX / CLOZARIL [Suspect]
     Dosage: 175 MG, QD
     Route: 048
     Dates: start: 20130115, end: 20130117
  9. LEPONEX / CLOZARIL [Suspect]
     Dosage: 200 MG, QD
     Route: 048
     Dates: start: 20130118, end: 20130207
  10. LEPONEX / CLOZARIL [Suspect]
     Dosage: 225 MG, QD
     Route: 048
     Dates: start: 20130208, end: 20130221
  11. LEPONEX / CLOZARIL [Suspect]
     Dosage: 250 MG, QD
     Route: 048
     Dates: start: 20130222, end: 20130307
  12. LEPONEX / CLOZARIL [Suspect]
     Dosage: 275 MG, QD
     Route: 048
     Dates: start: 20130308, end: 20130314
  13. LEPONEX / CLOZARIL [Suspect]
     Dosage: 300 MG, QD
     Route: 048
     Dates: start: 20130315, end: 20130328
  14. FLUMEZIN [Concomitant]
     Dosage: 8 MG, UNK
     Route: 048
     Dates: start: 20121218
  15. FLUMEZIN [Concomitant]
     Dosage: 6 MG, UNK
     Route: 048
  16. FLUMEZIN [Concomitant]
     Dosage: 4 MG, UNK
     Route: 048
  17. FLUMEZIN [Concomitant]
     Dosage: 2 MG, UNK
     Route: 048
     Dates: end: 20130111
  18. HIRNAMIN [Concomitant]
     Dosage: 50 MG, UNK
     Route: 048
     Dates: end: 20130115
  19. AKINETON [Concomitant]
     Dosage: 1 MG, UNK
     Route: 048
  20. AKINETON [Concomitant]
     Dosage: 0.5 MG, UNK
     Route: 048
     Dates: end: 20130124
  21. LENDORMIN [Concomitant]
     Indication: SCHIZOPHRENIA
     Dosage: 0.25 MG, UNK
     Route: 048
     Dates: end: 20130221
  22. DEPAKENE [Concomitant]
     Indication: CONVULSION PROPHYLAXIS
     Dosage: 400 MG, UNK
     Route: 048
     Dates: start: 20130322
  23. MAGLAX [Concomitant]
     Dosage: 1320 MG, UNK
     Route: 048
     Dates: start: 20130321, end: 20130328

REACTIONS (11)
  - Gait disturbance [Recovered/Resolved]
  - Haemoglobin decreased [Not Recovered/Not Resolved]
  - Red blood cell count decreased [Not Recovered/Not Resolved]
  - Renal impairment [Recovered/Resolved]
  - Convulsion [Recovered/Resolved]
  - Myoclonus [Recovered/Resolved]
  - Haematocrit decreased [Not Recovered/Not Resolved]
  - Blood magnesium increased [Unknown]
  - Blood urea increased [Recovered/Resolved]
  - Blood creatinine increased [Recovered/Resolved]
  - Pyrexia [Recovered/Resolved]
